FAERS Safety Report 24242595 (Version 1)
Quarter: 2024Q3

REPORT INFORMATION
  Report Type: Spontaneous
  Country: US (occurrence: US)
  Receive Date: 20240823
  Receipt Date: 20240823
  Transmission Date: 20241016
  Serious: Yes (Other)
  Sender: CSL BEHRING
  Company Number: US-BEH-2024177534

PATIENT
  Sex: Female

DRUGS (12)
  1. HUMATE-P [Suspect]
     Active Substance: HUMAN COAGULATION FACTOR VIII/VON WILLEBRAND FACTOR COMPLEX
     Indication: Von Willebrand^s disease
     Dosage: 2400 UNK,1824U (+/- 10%  DOSE - 1963) INTRAVENOUSLY EVERY 24 HRS IF NEEDED FOR BLEEDING OR PRE SURGI
     Route: 042
  2. AMLODIPINE [Concomitant]
     Active Substance: AMLODIPINE BESYLATE
  3. ATORVASTATIN [Concomitant]
     Active Substance: ATORVASTATIN
  4. EPIPEN [Concomitant]
     Active Substance: EPINEPHRINE
  5. FLUVOXAMINE MALEATE [Concomitant]
     Active Substance: FLUVOXAMINE MALEATE
  6. IRBESARTAN [Concomitant]
     Active Substance: IRBESARTAN
  7. LAMICTAL [Concomitant]
     Active Substance: LAMOTRIGINE
  8. MYRBETRIQ [Concomitant]
     Active Substance: MIRABEGRON
  9. POTASSIUM CHLORIDE [Concomitant]
     Active Substance: POTASSIUM CHLORIDE
  10. PROPRANOLOL HYDROCHLORIDE [Concomitant]
     Active Substance: PROPRANOLOL HYDROCHLORIDE
  11. TRAZODONE HCL [Concomitant]
     Active Substance: TRAZODONE HYDROCHLORIDE
  12. PROLIA [Concomitant]
     Active Substance: DENOSUMAB
     Dosage: UNK

REACTIONS (5)
  - Neck surgery [Unknown]
  - Arthralgia [Unknown]
  - Depressed mood [Unknown]
  - Haemorrhagic disorder [Unknown]
  - Renal disorder [Unknown]
